FAERS Safety Report 14239777 (Version 1)
Quarter: 2017Q4

REPORT INFORMATION
  Report Type: Spontaneous
  Country: US (occurrence: US)
  Receive Date: 20171130
  Receipt Date: 20171130
  Transmission Date: 20180321
  Serious: Yes (Other)
  Sender: FDA-Public Use
  Company Number: US-TEVA-2017-US-827075

PATIENT

DRUGS (1)
  1. TOLMETIN [Suspect]
     Active Substance: TOLMETIN
     Route: 065

REACTIONS (3)
  - Swollen tongue [Unknown]
  - Pharyngeal oedema [Unknown]
  - Urticaria [Unknown]
